FAERS Safety Report 12068199 (Version 1)
Quarter: 2016Q1

REPORT INFORMATION
  Report Type: Spontaneous
  Country: US (occurrence: US)
  Receive Date: 20160211
  Receipt Date: 20160211
  Transmission Date: 20160526
  Serious: No
  Sender: FDA-Public Use
  Company Number: US-SMITH AND NEPHEW, INC-2015SMT00424

PATIENT
  Sex: Male

DRUGS (3)
  1. UNSPECIFIED MEDICATION(S) [Concomitant]
  2. ASPIRIN. [Concomitant]
     Active Substance: ASPIRIN
  3. REGRANEX [Suspect]
     Active Substance: BECAPLERMIN
     Indication: SKIN ULCER
     Dosage: UNK
     Dates: start: 201509

REACTIONS (3)
  - Application site haemorrhage [Unknown]
  - Off label use [Unknown]
  - Application site pain [Unknown]

NARRATIVE: CASE EVENT DATE: 2015
